FAERS Safety Report 14973179 (Version 1)
Quarter: 2018Q2

REPORT INFORMATION
  Report Type: Spontaneous
  Country: CN (occurrence: CN)
  Receive Date: 20180605
  Receipt Date: 20180605
  Transmission Date: 20180711
  Serious: Yes (Other)
  Sender: FDA-Public Use
  Company Number: PHHY2018CN012895

PATIENT
  Age: 33 Year
  Sex: Male

DRUGS (2)
  1. BROMOCRIPTINE [Suspect]
     Active Substance: BROMOCRIPTINE
     Indication: PROLACTIN-PRODUCING PITUITARY TUMOUR
     Dosage: 7.5 MG, QD
     Route: 065
  2. BROMOCRIPTINE [Suspect]
     Active Substance: BROMOCRIPTINE
     Dosage: 15 MG, QD
     Route: 065

REACTIONS (3)
  - Prolactin-producing pituitary tumour [Unknown]
  - Drug resistance [Unknown]
  - Neoplasm progression [Unknown]
